FAERS Safety Report 19422335 (Version 1)
Quarter: 2021Q2

REPORT INFORMATION
  Report Type: Spontaneous
  Country: DE (occurrence: DE)
  Receive Date: 20210616
  Receipt Date: 20210616
  Transmission Date: 20210717
  Serious: Yes (Hospitalization, Other)
  Sender: FDA-Public Use
  Company Number: DE-ASTELLAS-2021US021457

PATIENT
  Age: 60 Year
  Sex: Female

DRUGS (7)
  1. REGADENOSON [Suspect]
     Active Substance: REGADENOSON
     Indication: CARDIAC STRESS TEST
     Dosage: 400 ?G, TOTAL DOSE (SINGLE)
     Route: 042
     Dates: start: 20210527, end: 20210527
  2. CANDESARTAN. [Concomitant]
     Active Substance: CANDESARTAN
     Indication: PRODUCT USED FOR UNKNOWN INDICATION
     Dosage: UNK UNK, UNKNOWN FREQ.
     Route: 065
  3. HYDROCHLOROTHIAZID DEXCEL [Concomitant]
     Indication: HYPERTONIA
     Dosage: UNK UNK, UNKNOWN FREQ.
     Route: 065
  4. REGADENOSON [Suspect]
     Active Substance: REGADENOSON
     Indication: CARDIAC STRESS TEST
     Dosage: 400 ?G, TOTAL DOSE (SINGLE)
     Route: 042
     Dates: start: 20210527, end: 20210527
  5. AMLODIPIN [Concomitant]
     Active Substance: AMLODIPINE BESYLATE
     Indication: PRODUCT USED FOR UNKNOWN INDICATION
     Dosage: UNK UNK, UNKNOWN FREQ.
     Route: 065
  6. REGADENOSON [Suspect]
     Active Substance: REGADENOSON
     Indication: CARDIAC STRESS TEST
     Dosage: 400 ?G, TOTAL DOSE (SINGLE)
     Route: 042
     Dates: start: 20210527, end: 20210527
  7. REGADENOSON [Suspect]
     Active Substance: REGADENOSON
     Indication: CARDIAC STRESS TEST
     Dosage: 400 ?G, TOTAL DOSE (SINGLE)
     Route: 042
     Dates: start: 20210527, end: 20210527

REACTIONS (8)
  - Dizziness [Recovered/Resolved]
  - Haematochezia [Recovered/Resolved]
  - Cardiovascular disorder [Unknown]
  - Abdominal pain [Recovered/Resolved]
  - Colitis [Recovered/Resolved]
  - Somnolence [Recovered/Resolved]
  - Diarrhoea [Recovered/Resolved]
  - Incorrect product administration duration [Unknown]

NARRATIVE: CASE EVENT DATE: 20210527
